FAERS Safety Report 6509603-1 (Version None)
Quarter: 2009Q4

REPORT INFORMATION
  Report Type: 
  Country: None (occurrence: None)
  Receive Date: 20091216
  Receipt Date: 20091201
  Transmission Date: 20100525
  Serious: Yes (Death)
  Sender: FDA-Public Use
  Company Number: B0614626A

PATIENT
  Sex: 0

DRUGS (11)
  1. ETOPOSIDE [Suspect]
     Indication: RHABDOMYOSARCOMA
  2. MELPHALAN HYDROCHLORIDE [Suspect]
     Indication: RHABDOMYOSARCOMA
  3. CARBOPLATIN [Suspect]
     Indication: RHABDOMYOSARCOMA
     Dosage: 500 MG/M2 PER DAY
  4. EPIRUBICIN [Suspect]
     Indication: RHABDOMYOSARCOMA
     Dosage: 150 MG/M2 PER DAY
  5. VINCRISTINE [Suspect]
     Indication: RHABDOMYOSARCOMA
     Dosage: 1.5 MG/M2 PER DAY
  6. IFOSFAMIDE [Suspect]
     Indication: RHABDOMYOSARCOMA
     Dosage: 9 G/M2 PER DAY
  7. DACTINOMYCIN [Suspect]
     Indication: RHABDOMYOSARCOMA
     Dosage: 1.5 MG/M2 PER DAY
  8. THIOTEPA [Suspect]
     Indication: RHABDOMYOSARCOMA
  9. GRANULOCYTE COL.STIM.FACT (FORMULATION UNKNOWN) (GRANULOCYTE COL.STIM. [Suspect]
     Indication: RHABDOMYOSARCOMA
  10. CYCLOPHOSPHAMIDE [Suspect]
     Indication: RHABDOMYOSARCOMA
  11. RADIOTHERAPY (FORMULATION UNKNOWN) (RADIOTHERAPY) [Suspect]

REACTIONS (1)
  - CAPILLARY LEAK SYNDROME [None]
